FAERS Safety Report 6710512-3 (Version None)
Quarter: 2010Q2

REPORT INFORMATION
  Report Type: 
  Country: None (occurrence: None)
  Receive Date: 20100430
  Receipt Date: 20100414
  Transmission Date: 20101027
  Serious: Yes (Hospitalization)
  Sender: FDA-Public Use
  Company Number: APP201000245

PATIENT
  Age: 25 Year
  Sex: Male

DRUGS (4)
  1. METHYLPREDNISOLONE SODIUM SUCCINATE [Suspect]
     Indication: TRANSPLANT REJECTION
     Dosage: 500 MG
  2. MYCOPHENOLATE MOFETIL [Suspect]
     Indication: TRANSPLANT REJECTION
     Dosage: 1000 MG, 1 IN 1 D
  3. TACRAOLIMUS (TACROLIMUS) [Suspect]
     Indication: TRANSPLANT REJECTION
  4. GANCICLOVIR [Concomitant]

REACTIONS (3)
  - BRONCHOPULMONARY ASPERGILLOSIS [None]
  - CYTOMEGALOVIRUS INFECTION [None]
  - INTERVERTEBRAL DISCITIS [None]
